FAERS Safety Report 9523902 (Version 1)
Quarter: 2013Q3

REPORT INFORMATION
  Report Type: Spontaneous
  Country: US (occurrence: None)
  Receive Date: 20130716
  Receipt Date: 20130716
  Transmission Date: 20140515
  Serious: Yes (Other)
  Sender: FDA-Public Use
  Company Number: None

PATIENT
  Age: 23 Year
  Sex: Female

DRUGS (1)
  1. DEPO PROVERA [Suspect]
     Indication: CONTRACEPTION
     Dosage: Q3MONTHS
     Route: 030
     Dates: start: 201301, end: 201306

REACTIONS (3)
  - Drug ineffective [None]
  - Fear [None]
  - Pregnancy on contraceptive [None]
